FAERS Safety Report 24416590 (Version 1)
Quarter: 2024Q4

REPORT INFORMATION
  Report Type: Other
  Country: US (occurrence: US)
  Receive Date: 20241009
  Receipt Date: 20241009
  Transmission Date: 20250115
  Serious: Yes (Death)
  Sender: ZHEJIANG JINGXIN PHARMACEUTICAL
  Company Number: US-Zhejiang Jingxin Pharmaceutical Co., Ltd-2162709

PATIENT
  Age: 61 Year

DRUGS (7)
  1. LEVETIRACETAM [Suspect]
     Active Substance: LEVETIRACETAM
     Indication: Product used for unknown indication
  2. GABAPENTIN [Suspect]
     Active Substance: GABAPENTIN
  3. MEPROBAMATE [Concomitant]
     Active Substance: MEPROBAMATE
  4. TOPIRAMATE [Concomitant]
     Active Substance: TOPIRAMATE
  5. MIRTAZAPINE [Concomitant]
     Active Substance: MIRTAZAPINE
  6. TRAZODONE [Suspect]
     Active Substance: TRAZODONE HYDROCHLORIDE
  7. DONEPEZIL [Suspect]
     Active Substance: DONEPEZIL

REACTIONS (2)
  - Toxicity to various agents [Fatal]
  - Overdose [Unknown]
